FAERS Safety Report 13503535 (Version 1)
Quarter: 2017Q2

REPORT INFORMATION
  Report Type: Report from Study
  Country: US (occurrence: US)
  Receive Date: 20170502
  Receipt Date: 20170502
  Transmission Date: 20170830
  Serious: No
  Sender: FDA-Public Use
  Company Number: US-AMGEN-USASL2017063811

PATIENT
  Age: 71 Year
  Sex: Female

DRUGS (2)
  1. ENBREL [Suspect]
     Active Substance: ETANERCEPT
     Dosage: 50 MG, QWK
     Route: 065
     Dates: start: 20170414
  2. ENBREL [Suspect]
     Active Substance: ETANERCEPT
     Indication: RHEUMATOID ARTHRITIS
     Dosage: 50 MG, QWK
     Route: 065
     Dates: end: 2017

REACTIONS (7)
  - Pain in extremity [Unknown]
  - Pruritus [Unknown]
  - Increased tendency to bruise [Unknown]
  - Injection site discolouration [Unknown]
  - Influenza [Not Recovered/Not Resolved]
  - Feeling hot [Unknown]
  - Burning sensation [Unknown]

NARRATIVE: CASE EVENT DATE: 20170328
